FAERS Safety Report 22342535 (Version 1)
Quarter: 2023Q2

REPORT INFORMATION
  Report Type: Spontaneous
  Country: FR (occurrence: FR)
  Receive Date: 20230519
  Receipt Date: 20230519
  Transmission Date: 20230721
  Serious: No
  Sender: FDA-Public Use
  Company Number: None

PATIENT
  Age: 71 Year
  Sex: Male
  Weight: 68 kg

DRUGS (7)
  1. AVAPRITINIB [Suspect]
     Active Substance: AVAPRITINIB
     Indication: Systemic mastocytosis
     Route: 048
     Dates: start: 20220827, end: 20221109
  2. AVAPRITINIB [Suspect]
     Active Substance: AVAPRITINIB
     Route: 048
     Dates: start: 20221110, end: 20230117
  3. AVAPRITINIB [Suspect]
     Active Substance: AVAPRITINIB
     Route: 048
     Dates: start: 20230118
  4. URSODIOL [Concomitant]
     Active Substance: URSODIOL
     Indication: Non-cirrhotic portal hypertension
     Route: 048
  5. SPIRONOLACTONE [Concomitant]
     Active Substance: SPIRONOLACTONE
     Indication: Ascites
     Route: 065
  6. FUROSEMIDE [Concomitant]
     Active Substance: FUROSEMIDE
     Indication: Ascites
     Route: 048
  7. CARVEDILOL [Concomitant]
     Active Substance: CARVEDILOL
     Indication: Non-cirrhotic portal hypertension
     Route: 048

REACTIONS (1)
  - Epistaxis [Recovered/Resolved]

NARRATIVE: CASE EVENT DATE: 20221101
